FAERS Safety Report 11653654 (Version 7)
Quarter: 2018Q1

REPORT INFORMATION
  Report Type: Spontaneous
  Country: JP (occurrence: JP)
  Receive Date: 20151022
  Receipt Date: 20180131
  Transmission Date: 20180508
  Serious: Yes (Hospitalization, Other)
  Sender: FDA-Public Use
  Company Number: PHJP2015JP017958

PATIENT
  Age: 33 Year
  Sex: Female
  Weight: 69.5 kg

DRUGS (4)
  1. HYDRALAZINE [Suspect]
     Active Substance: HYDRALAZINE HYDROCHLORIDE
     Indication: GESTATIONAL HYPERTENSION
     Dosage: UNK
     Route: 048
  2. MAGNESIUM SULFATE. [Suspect]
     Active Substance: MAGNESIUM SULFATE
     Indication: GESTATIONAL HYPERTENSION
     Dosage: UNK
     Route: 065
  3. NICARDIPINE [Concomitant]
     Active Substance: NICARDIPINE
     Indication: BLOOD PRESSURE INCREASED
     Dosage: UNK
     Route: 042
  4. METHYLDOPA. [Suspect]
     Active Substance: METHYLDOPA
     Indication: BLOOD PRESSURE INCREASED
     Dosage: UNK
     Route: 048

REACTIONS (14)
  - Maternal exposure during pregnancy [Unknown]
  - HELLP syndrome [Unknown]
  - Haemolytic anaemia [Unknown]
  - Hypertensive nephropathy [Unknown]
  - Headache [Unknown]
  - Vomiting [Unknown]
  - Posterior reversible encephalopathy syndrome [Unknown]
  - Renal impairment [Unknown]
  - Depressed level of consciousness [Unknown]
  - Premature labour [Unknown]
  - Abdominal pain upper [Unknown]
  - Thrombocytopenia [Unknown]
  - Visual impairment [Unknown]
  - Oliguria [Unknown]
